FAERS Safety Report 16248725 (Version 1)
Quarter: 2019Q2

REPORT INFORMATION
  Report Type: Other
  Country: US (occurrence: US)
  Receive Date: 20190429
  Receipt Date: 20190429
  Transmission Date: 20190711
  Serious: Yes (Hospitalization)
  Sender: FDA-Public Use
  Company Number: US-GUARDIAN DRUG COMPANY-2066376

PATIENT
  Age: 69 Year
  Sex: Male

DRUGS (2)
  1. CHILDRENS IBUPROFEN [Suspect]
     Active Substance: IBUPROFEN
     Indication: BACK PAIN
     Route: 065
  2. PREDNISONE. [Suspect]
     Active Substance: PREDNISONE
     Route: 065

REACTIONS (3)
  - Peptic ulcer [Recovered/Resolved]
  - Gastrointestinal fistula [Recovered/Resolved]
  - Duodenal ulcer haemorrhage [Recovered/Resolved]
